FAERS Safety Report 8149786-3 (Version None)
Quarter: 2012Q1

REPORT INFORMATION
  Report Type: 
  Country: None (occurrence: None)
  Receive Date: 20120218
  Receipt Date: 20111202
  Transmission Date: 20120608
  Serious: No
  Sender: FDA-Public Use
  Company Number: US-ALLERGAN-1115781US

PATIENT
  Age: 75 Year
  Sex: Female

DRUGS (2)
  1. BOTULINUM TOXIN TYPE A [Suspect]
     Dosage: UNK
     Dates: start: 20101001
  2. BOTULINUM TOXIN TYPE A [Suspect]
     Indication: MUSCLE SPASTICITY
     Dosage: UNK
     Route: 030
     Dates: start: 20111114, end: 20111114

REACTIONS (3)
  - POSTURE ABNORMAL [None]
  - DYSPNOEA [None]
  - DIZZINESS [None]
